FAERS Safety Report 6960058-2 (Version None)
Quarter: 2010Q3

REPORT INFORMATION
  Report Type: 
  Country: None (occurrence: None)
  Receive Date: 20100901
  Receipt Date: 20100819
  Transmission Date: 20110219
  Serious: Yes (Hospitalization)
  Sender: FDA-Public Use
  Company Number: AU-BAYER-201033250GPV

PATIENT
  Age: 45 Year
  Sex: Female

DRUGS (4)
  1. BETAFERON [Suspect]
     Indication: MULTIPLE SCLEROSIS
     Dates: start: 20080708
  2. MIRENA [Concomitant]
     Indication: CONTRACEPTION
     Route: 015
     Dates: start: 20080101, end: 20100122
  3. PARIET [Concomitant]
     Indication: GASTROOESOPHAGEAL REFLUX DISEASE
     Route: 048
     Dates: start: 20030101
  4. CITALOPRAM HYDROBROMIDE [Concomitant]
     Indication: DEPRESSION
     Route: 048
     Dates: start: 19990101

REACTIONS (1)
  - ENDOMETRIOSIS [None]
